FAERS Safety Report 7574621-1 (Version None)
Quarter: 2011Q2

REPORT INFORMATION
  Report Type: 
  Country: None (occurrence: None)
  Receive Date: 20110627
  Receipt Date: 20110606
  Transmission Date: 20111010
  Serious: Yes (Other)
  Sender: FDA-Public Use
  Company Number: AU-BAYER-2011-048969

PATIENT
  Age: 59 Year
  Sex: Male

DRUGS (6)
  1. ALLOPURINOL [Concomitant]
  2. ATORVASTATIN [Concomitant]
     Dosage: UNK UNK, QD
  3. PRAZOSIN HYDROCHLORIDE [Concomitant]
  4. PERINDOPRIL ERBUMINE [Suspect]
     Dosage: UNK UNK, QD
     Dates: start: 20060201, end: 20110114
  5. ASPIRIN [Suspect]
  6. COLECALCIFEROL [Suspect]

REACTIONS (3)
  - ANGIOEDEMA [None]
  - DYSPNOEA [None]
  - RASH PRURITIC [None]
